FAERS Safety Report 25859578 (Version 3)
Quarter: 2025Q4

REPORT INFORMATION
  Report Type: Report from Study
  Country: JP (occurrence: JP)
  Receive Date: 20250929
  Receipt Date: 20251003
  Transmission Date: 20260118
  Serious: Yes (Other)
  Sender: RECORDATI
  Company Number: JP-ORPHANEU-2025006808

PATIENT
  Sex: Male
  Weight: 7.04 kg

DRUGS (7)
  1. CARBAGLU [Suspect]
     Active Substance: CARGLUMIC ACID
     Indication: Propionic acidaemia
     Dosage: 600 MG/DAY, TID (AFTER MEALS, MORNING, NOON, EVENING), SYRINGE
     Route: 048
     Dates: start: 20240930, end: 20241018
  2. CARBAGLU [Suspect]
     Active Substance: CARGLUMIC ACID
     Dosage: 800 MG/DAY QID, (AFTER MEALS, MORNING, NOON, EVENING, BEDTIME)
     Dates: start: 20241019, end: 20241120
  3. CARBAGLU [Suspect]
     Active Substance: CARGLUMIC ACID
     Dosage: 1000 MG/DAY, 5 TIMES, (AFTER MEALS, MORNING, NOON, EVENING, UPON WAKING, BEDTIME)
     Dates: start: 20241121, end: 20241220
  4. CARBAGLU [Suspect]
     Active Substance: CARGLUMIC ACID
     Dosage: 1000 MG/DAY, TID, (400MG?2 TIMES, 200MG?1 TIME) (AFTER MEALS, MORNING, NOON, EVENING)
     Dates: start: 20241221, end: 20250210
  5. LACTULOSE [Concomitant]
     Active Substance: LACTULOSE
     Indication: Product used for unknown indication
     Dosage: 3 MILLILITER, QD, SYRUP
     Route: 048
     Dates: start: 20240930, end: 20241220
  6. Levocarnitine ff [Concomitant]
     Indication: Product used for unknown indication
     Dosage: 6ML/DAY, TID, SOLUTION
     Route: 048
     Dates: start: 20240930, end: 20250210
  7. Incremin [Concomitant]
     Indication: Disease complication
     Dosage: 3ML/DAY (TID), SOLUBLE
     Route: 048
     Dates: start: 20240930, end: 20250210

REACTIONS (3)
  - Apnoeic attack [Recovered/Resolved]
  - Hyperammonaemia [Unknown]
  - Off label use [Recovered/Resolved]

NARRATIVE: CASE EVENT DATE: 20240930
